FAERS Safety Report 15793488 (Version 1)
Quarter: 2019Q1

REPORT INFORMATION
  Report Type: Report from Study
  Country: None (occurrence: US)
  Receive Date: 20190107
  Receipt Date: 20190107
  Transmission Date: 20190417
  Serious: Yes (Other)
  Sender: FDA-Public Use
  Company Number: US-ABBVIE-19S-163-2609334-00

PATIENT
  Age: 85 Year
  Sex: Female

DRUGS (1)
  1. CREON [Suspect]
     Active Substance: PANCRELIPASE AMYLASE\PANCRELIPASE LIPASE\PANCRELIPASE PROTEASE
     Indication: PRODUCT USED FOR UNKNOWN INDICATION
     Route: 048

REACTIONS (20)
  - Impaired gastric emptying [Unknown]
  - Dysphonia [Unknown]
  - Abdominal pain upper [Unknown]
  - Depression [Unknown]
  - Gastrointestinal disorder [Unknown]
  - Nausea [Unknown]
  - Abdominal pain [Unknown]
  - Gastrointestinal motility disorder [Unknown]
  - Flatulence [Unknown]
  - Diarrhoea [Unknown]
  - Dysphagia [Unknown]
  - Cardiac murmur [Unknown]
  - Abnormal faeces [Unknown]
  - Vulval cancer [Unknown]
  - Gastrooesophageal reflux disease [Unknown]
  - Increased tendency to bruise [Unknown]
  - Insomnia [Unknown]
  - Intestinal pseudo-obstruction [Unknown]
  - Back pain [Unknown]
  - Abdominal distension [Unknown]

NARRATIVE: CASE EVENT DATE: 2013
